FAERS Safety Report 8591052-6 (Version None)
Quarter: 2012Q3

REPORT INFORMATION
  Report Type: 
  Country: None (occurrence: None)
  Receive Date: 20120813
  Receipt Date: 20120807
  Transmission Date: 20120928
  Serious: Yes (Death)
  Sender: FDA-Public Use
  Company Number: US-CELGENEUS-163-21880-12071791

PATIENT
  Sex: Male

DRUGS (2)
  1. LACTULOSE [Concomitant]
     Route: 065
  2. REVLIMID [Suspect]
     Indication: MULTIPLE MYELOMA
     Dosage: 18.75 MILLIGRAM
     Route: 048
     Dates: start: 20111001, end: 20120716

REACTIONS (1)
  - DEATH [None]
